FAERS Safety Report 7069448-3 (Version None)
Quarter: 2010Q4

REPORT INFORMATION
  Report Type: 
  Country: None (occurrence: None)
  Receive Date: 20101028
  Receipt Date: 20101018
  Transmission Date: 20110411
  Serious: Yes (Congenital Anomaly)
  Sender: FDA-Public Use
  Company Number: US-GILEAD-2010-0030595

PATIENT
  Sex: Female
  Weight: 3.289 kg

DRUGS (3)
  1. VIREAD [Suspect]
     Indication: HIV INFECTION
     Route: 064
  2. KALETRA [Suspect]
     Indication: HIV INFECTION
     Route: 064
  3. VIRAMUNE [Suspect]
     Indication: HIV INFECTION
     Route: 064

REACTIONS (1)
  - TRISOMY 21 [None]
